FAERS Safety Report 8222781-1 (Version None)
Quarter: 2012Q1

REPORT INFORMATION
  Report Type: 
  Country: None (occurrence: None)
  Receive Date: 20120320
  Receipt Date: 20120315
  Transmission Date: 20120608
  Serious: Yes (Other)
  Sender: FDA-Public Use
  Company Number: BR-ABBOTT-12P-020-0912584-00

PATIENT
  Sex: Female

DRUGS (1)
  1. HUMIRA [Suspect]
     Indication: RHEUMATOID ARTHRITIS
     Dates: start: 20080401

REACTIONS (7)
  - FOOT FRACTURE [None]
  - LIGAMENT SPRAIN [None]
  - BONE DISORDER [None]
  - DEVICE EXPULSION [None]
  - OSTEOPOROSIS [None]
  - FALL [None]
  - SKIN ATROPHY [None]
